FAERS Safety Report 11054944 (Version 1)
Quarter: 2015Q2

REPORT INFORMATION
  Report Type: Spontaneous
  Country: ZA (occurrence: ZA)
  Receive Date: 20150422
  Receipt Date: 20150422
  Transmission Date: 20150821
  Serious: Yes (Hospitalization)
  Sender: FDA-Public Use
  Company Number: ZA-PFIZER INC-2015134107

PATIENT
  Age: 59 Year
  Sex: Female

DRUGS (13)
  1. FOLIC ACID. [Concomitant]
     Active Substance: FOLIC ACID
     Indication: PROPHYLAXIS
     Dosage: 2 DF, 1X/DAY
     Route: 048
     Dates: start: 2006
  2. CO-IRBEWIN [Concomitant]
     Indication: HYPERTENSION
     Dosage: 150/12.5 MG, 1X/DAY
     Route: 048
     Dates: start: 2011
  3. PREMARIN [Suspect]
     Active Substance: ESTROGENS, CONJUGATED
     Indication: HORMONE REPLACEMENT THERAPY
     Dosage: 1.25 MG, 1X/DAY
     Route: 048
     Dates: start: 2011
  4. VENLOR [Concomitant]
     Indication: DEPRESSION
     Dosage: 150MG ,2XDAY
     Route: 048
     Dates: start: 2006
  5. VESICARE [Concomitant]
     Active Substance: SOLIFENACIN SUCCINATE
     Indication: HYPERTONIC BLADDER
     Dosage: 10 MG, 1X/DAY
     Route: 048
     Dates: start: 2011
  6. PREDNISONE. [Concomitant]
     Active Substance: PREDNISONE
     Indication: NEPHRITIC SYNDROME
  7. SALAZOPYRIN [Suspect]
     Active Substance: SULFASALAZINE
     Indication: RHEUMATIC DISORDER
     Dosage: 500 MG, UNK
     Route: 048
     Dates: start: 2006
  8. GLUCOPHAGE XR [Concomitant]
     Active Substance: METFORMIN HYDROCHLORIDE
     Indication: DIABETES MELLITUS
     Dosage: 500 MG, 1X/DAY
     Route: 048
     Dates: start: 201411
  9. ARAVA [Concomitant]
     Active Substance: LEFLUNOMIDE
     Indication: RHEUMATOID ARTHRITIS
     Dosage: 20 MG, 1X/DAY
     Route: 048
     Dates: start: 2010
  10. ALTOSEC /00661201/ [Concomitant]
     Indication: DUODENAL ULCER
     Dosage: UNK, 2X/DAY
     Route: 048
     Dates: start: 2011
  11. PREDNISONE. [Concomitant]
     Active Substance: PREDNISONE
     Indication: RHEUMATOID ARTHRITIS
     Dosage: 10 MG, 1X/DAY
     Route: 048
     Dates: start: 2010
  12. PURESIS [Concomitant]
     Active Substance: FUROSEMIDE
     Indication: HYPERTENSION
     Dosage: 40 MG, 1X/DAY
     Route: 048
     Dates: start: 2008
  13. SLOW K [Concomitant]
     Active Substance: POTASSIUM CHLORIDE
     Indication: MINERAL SUPPLEMENTATION
     Dosage: 600 MG, 1X/DAY
     Route: 048
     Dates: start: 2008

REACTIONS (1)
  - Diabetic ulcer [Recovering/Resolving]
